FAERS Safety Report 17038273 (Version 1)
Quarter: 2019Q4

REPORT INFORMATION
  Report Type: Report from Study
  Country: US (occurrence: US)
  Receive Date: 20191115
  Receipt Date: 20191115
  Transmission Date: 20200122
  Serious: Yes (Other)
  Sender: FDA-Public Use
  Company Number: US-JNJFOC-20170424518

PATIENT
  Age: 68 Year
  Sex: Male

DRUGS (33)
  1. MULTI COMPLETE [Concomitant]
  2. BABY ASPIRIN [Concomitant]
     Active Substance: ASPIRIN
  3. IMBRUVICA [Suspect]
     Active Substance: IBRUTINIB
     Route: 048
     Dates: start: 20151202
  4. IMBRUVICA [Suspect]
     Active Substance: IBRUTINIB
     Route: 048
  5. IMBRUVICA [Suspect]
     Active Substance: IBRUTINIB
     Route: 048
     Dates: start: 20150506
  6. NOVOLOG [Concomitant]
     Active Substance: INSULIN ASPART
  7. CARAFATE [Concomitant]
     Active Substance: SUCRALFATE
  8. BASAGLAR [Concomitant]
     Active Substance: INSULIN GLARGINE
  9. VITAMIN B12 [Concomitant]
     Active Substance: CYANOCOBALAMIN
  10. VITAMIN D3 [Concomitant]
     Active Substance: CHOLECALCIFEROL
  11. NORCO [Concomitant]
     Active Substance: ACETAMINOPHEN\HYDROCODONE BITARTRATE
  12. IBUPROFEN. [Concomitant]
     Active Substance: IBUPROFEN
  13. PRILOSEC [Concomitant]
     Active Substance: OMEPRAZOLE MAGNESIUM
  14. SANDOSTATIN [Concomitant]
     Active Substance: OCTREOTIDE ACETATE
  15. ZYLOPRIM [Concomitant]
     Active Substance: ALLOPURINOL
  16. IMBRUVICA [Suspect]
     Active Substance: IBRUTINIB
     Route: 048
     Dates: start: 20161118
  17. LISINOPRIL. [Concomitant]
     Active Substance: LISINOPRIL
  18. FLOMAX [Concomitant]
     Active Substance: TAMSULOSIN HYDROCHLORIDE
  19. REGLAN [Concomitant]
     Active Substance: METOCLOPRAMIDE HYDROCHLORIDE
  20. OMEPRAZOLE. [Concomitant]
     Active Substance: OMEPRAZOLE
  21. ACYCLOVIR. [Concomitant]
     Active Substance: ACYCLOVIR
  22. METFORMIN [Concomitant]
     Active Substance: METFORMIN HYDROCHLORIDE
  23. ASPIRIN. [Concomitant]
     Active Substance: ASPIRIN
  24. TRAZODONE [Concomitant]
     Active Substance: TRAZODONE HYDROCHLORIDE
  25. EMERGEN C [Concomitant]
     Active Substance: MINERALS\VITAMINS
  26. WHEY PROTEIN [Concomitant]
     Active Substance: WHEY
  27. CHOLESTYRAMINE. [Concomitant]
     Active Substance: CHOLESTYRAMINE
  28. XANAX [Concomitant]
     Active Substance: ALPRAZOLAM
  29. ATORVASTATIN CALCIUM. [Concomitant]
     Active Substance: ATORVASTATIN CALCIUM
  30. IMBRUVICA [Suspect]
     Active Substance: IBRUTINIB
     Indication: CHRONIC LYMPHOCYTIC LEUKAEMIA
     Route: 048
     Dates: start: 20151201
  31. AMBIEN [Concomitant]
     Active Substance: ZOLPIDEM TARTRATE
  32. LEVOTHYROXINE SODIUM. [Concomitant]
     Active Substance: LEVOTHYROXINE SODIUM
  33. TRAZODONE HYDROCHLORIDE. [Concomitant]
     Active Substance: TRAZODONE HYDROCHLORIDE

REACTIONS (7)
  - Accidental overdose [Recovered/Resolved]
  - Diabetes mellitus [Unknown]
  - Diarrhoea [Unknown]
  - Incorrect dose administered [Unknown]
  - Contusion [Unknown]
  - Carpal tunnel syndrome [Unknown]
  - Off label use [Unknown]

NARRATIVE: CASE EVENT DATE: 20170518
